FAERS Safety Report 5266158-X (Version None)
Quarter: 2007Q1

REPORT INFORMATION
  Report Type: 
  Country: None (occurrence: None)
  Receive Date: 20070315
  Receipt Date: 20070302
  Transmission Date: 20070707
  Serious: Yes (Other)
  Sender: FDA-Public Use
  Company Number: 2007GB00459

PATIENT
  Age: 75 Year
  Sex: Male

DRUGS (12)
  1. CASODEX [Suspect]
     Route: 048
     Dates: start: 20060101
  2. CASODEX [Suspect]
     Route: 048
     Dates: start: 20061120
  3. ASPIRIN [Concomitant]
  4. BRIMONIDINE TARTRATE [Concomitant]
  5. CARTEOLOL HYDROCHLORIDE [Concomitant]
     Route: 047
  6. DEXAMETHASONE [Concomitant]
  7. GLICLAZIDE [Concomitant]
  8. GOSERELIN [Concomitant]
     Route: 058
  9. LACTULOSE [Concomitant]
  10. METFORMIN HCL [Concomitant]
  11. MOVELAT [Concomitant]
     Route: 061
  12. RANITIDINE [Concomitant]

REACTIONS (4)
  - CONVULSION [None]
  - FEELING ABNORMAL [None]
  - IMMOBILE [None]
  - SOMNOLENCE [None]
